FAERS Safety Report 6477930-2 (Version None)
Quarter: 2009Q4

REPORT INFORMATION
  Report Type: 
  Country: None (occurrence: None)
  Receive Date: 20091207
  Receipt Date: 20091203
  Transmission Date: 20100525
  Serious: Yes (Disabling)
  Sender: FDA-Public Use
  Company Number: A0816898A

PATIENT
  Sex: Female
  Weight: 55 kg

DRUGS (6)
  1. MALARONE [Suspect]
     Indication: PROPHYLAXIS
     Dosage: 1TAB SINGLE DOSE
     Dates: start: 20081229, end: 20081230
  2. EFFEXOR XR [Concomitant]
  3. TRAZODONE [Concomitant]
  4. TOPAMAX [Concomitant]
  5. UNSPECIFIED MEDICATION [Concomitant]
  6. ORAL CONTRACEPTIVE [Concomitant]

REACTIONS (6)
  - ASTHENIA [None]
  - DIZZINESS [None]
  - FEELING ABNORMAL [None]
  - GAIT DISTURBANCE [None]
  - MALAISE [None]
  - NAUSEA [None]
